FAERS Safety Report 9242675 (Version 1)
Quarter: 2013Q2

REPORT INFORMATION
  Report Type: Spontaneous
  Country: AU (occurrence: AU)
  Receive Date: 20130419
  Receipt Date: 20130419
  Transmission Date: 20140414
  Serious: Yes (Hospitalization)
  Sender: FDA-Public Use
  Company Number: AU-GLAXOSMITHKLINE-B0885159A

PATIENT
  Age: 58 Year
  Sex: Female

DRUGS (4)
  1. TYKERB [Suspect]
     Indication: BREAST CANCER
     Route: 065
     Dates: start: 201204
  2. XELODA [Concomitant]
     Indication: BREAST CANCER
     Dates: start: 201204
  3. RADIATION THERAPY [Concomitant]
  4. HERCEPTIN [Concomitant]

REACTIONS (7)
  - Aphagia [Unknown]
  - Metastases to central nervous system [Unknown]
  - Vomiting [Unknown]
  - Diarrhoea [Unknown]
  - Palmar-plantar erythrodysaesthesia syndrome [Unknown]
  - Malaise [Unknown]
  - Off label use [Unknown]
